FAERS Safety Report 4377471-2 (Version None)
Quarter: 2004Q2

REPORT INFORMATION
  Report Type: 
  Country: None (occurrence: None)
  Receive Date: 20040615
  Receipt Date: 20030801
  Transmission Date: 20050107
  Serious: Yes (Disabling)
  Sender: FDA-Public Use
  Company Number: PHBS2003JP08248

PATIENT
  Age: 31 Year

DRUGS (1)
  1. GLEEVEC [Suspect]
     Indication: CHRONIC MYELOID LEUKAEMIA
     Dosage: 300 MG/D
     Route: 048
     Dates: start: 20030204

REACTIONS (1)
  - BONE FORMATION DECREASED [None]
